FAERS Safety Report 17073064 (Version 2)
Quarter: 2019Q4

REPORT INFORMATION
  Report Type: Spontaneous
  Country: JP (occurrence: JP)
  Receive Date: 20191125
  Receipt Date: 20191210
  Transmission Date: 20200122
  Serious: Yes (Hospitalization, Other)
  Sender: FDA-Public Use
  Company Number: JP-ASTELLAS-2019JP026582

PATIENT
  Age: 76 Year
  Sex: Female

DRUGS (7)
  1. GLOBULIN [Concomitant]
     Indication: PRODUCT USED FOR UNKNOWN INDICATION
     Dosage: UNK UNK, UNKNOWN FREQ.
     Route: 065
  2. CLINDAMYCIN. [Concomitant]
     Active Substance: CLINDAMYCIN
     Indication: SEPSIS
     Dosage: 1.2 G/DAY, UNKNOWN FREQ.
     Route: 041
  3. PREDNISOLONE. [Concomitant]
     Active Substance: PREDNISOLONE
     Indication: AUTOIMMUNE DISORDER
     Dosage: 8 MG/DAY, UNKNOWN FREQ.
     Route: 048
  4. TACROLIMUS. [Suspect]
     Active Substance: TACROLIMUS
     Indication: AUTOIMMUNE DISORDER
     Dosage: UNK UNK, UNKNOWN FREQ.
     Route: 048
  5. VANCOMYCIN [Concomitant]
     Active Substance: VANCOMYCIN
     Indication: SEPSIS
     Dosage: 1.0 G/DAY, UNKNOWN FREQ.
     Route: 041
  6. TACROLIMUS. [Suspect]
     Active Substance: TACROLIMUS
     Indication: RHEUMATOID VASCULITIS
  7. SULFAMETHOXAZOLE AND TRIMETHOPRIM [Concomitant]
     Active Substance: SULFAMETHOXAZOLE\TRIMETHOPRIM
     Indication: AUTOIMMUNE DISORDER
     Dosage: UNK UNK, UNKNOWN FREQ.
     Route: 048

REACTIONS (7)
  - Bacteroides test positive [Unknown]
  - Pneumoretroperitoneum [Recovering/Resolving]
  - Eubacterium infection [Unknown]
  - Pneumomediastinum [Recovering/Resolving]
  - Sepsis [Unknown]
  - Diverticulum intestinal haemorrhagic [Unknown]
  - Subcutaneous emphysema [Recovering/Resolving]
